FAERS Safety Report 17963002 (Version 1)
Quarter: 2020Q2

REPORT INFORMATION
  Report Type: Spontaneous
  Country: US (occurrence: US)
  Receive Date: 20200630
  Receipt Date: 20200630
  Transmission Date: 20200714
  Serious: Yes (Hospitalization)
  Sender: FDA-Public Use
  Company Number: None

PATIENT
  Age: 57 Year
  Sex: Male
  Weight: 135 kg

DRUGS (2)
  1. TRULICITY [Suspect]
     Active Substance: DULAGLUTIDE
     Indication: TYPE 2 DIABETES MELLITUS
     Dosage: ?          OTHER FREQUENCY:ONCE PER WEEK;?
     Route: 058
     Dates: start: 20200622, end: 20200622
  2. TRULICITY [Concomitant]
     Active Substance: DULAGLUTIDE
     Dates: start: 20200622, end: 20200622

REACTIONS (7)
  - Diabetes mellitus inadequate control [None]
  - Vomiting [None]
  - Hypophagia [None]
  - Nausea [None]
  - Diarrhoea [None]
  - Decreased appetite [None]
  - Small intestinal obstruction [None]

NARRATIVE: CASE EVENT DATE: 20200629
